FAERS Safety Report 23261640 (Version 19)
Quarter: 2025Q1

REPORT INFORMATION
  Report Type: Report from Study
  Country: CO (occurrence: CO)
  Receive Date: 20231205
  Receipt Date: 20250211
  Transmission Date: 20250408
  Serious: Yes (Hospitalization, Other)
  Sender: TAKEDA
  Company Number: CO-TAKEDA-2023TUS053647

PATIENT
  Age: 3 Year
  Sex: Male
  Weight: 22 kg

DRUGS (9)
  1. IDURSULFASE [Suspect]
     Active Substance: IDURSULFASE
     Indication: Mucopolysaccharidosis II
     Dosage: 11 MILLIGRAM, Q8WEEKS
     Dates: start: 20230424, end: 20241227
  2. IDURSULFASE [Suspect]
     Active Substance: IDURSULFASE
     Indication: Mucopolysaccharidosis
  3. IDURSULFASE [Suspect]
     Active Substance: IDURSULFASE
     Dosage: 11 MILLIGRAM, 1/WEEK
  4. IDURSULFASE [Suspect]
     Active Substance: IDURSULFASE
  5. IDURSULFASE [Suspect]
     Active Substance: IDURSULFASE
     Dosage: 12 MILLIGRAM, 1/WEEK
     Dates: end: 20241227
  6. CHLORPHENIRAMINE [Concomitant]
     Active Substance: CHLORPHENIRAMINE
     Indication: Premedication
  7. ACETAMINOPHEN [Concomitant]
     Active Substance: ACETAMINOPHEN
     Indication: Premedication
  8. HYDROCORTISONE [Concomitant]
     Active Substance: HYDROCORTISONE
     Indication: Premedication
  9. BUDESONIDE [Concomitant]
     Active Substance: BUDESONIDE
     Dosage: UNK UNK, Q12H

REACTIONS (28)
  - Asthma [Recovered/Resolved]
  - Cough [Not Recovered/Not Resolved]
  - Dyspnoea [Not Recovered/Not Resolved]
  - Administration site pain [Unknown]
  - Rash [Recovered/Resolved]
  - Nasopharyngitis [Recovering/Resolving]
  - Eyelid oedema [Unknown]
  - Skin lesion [Unknown]
  - Influenza [Not Recovered/Not Resolved]
  - Otorrhoea [Not Recovered/Not Resolved]
  - Erythema [Unknown]
  - Urticaria [Recovered/Resolved]
  - Pruritus [Recovered/Resolved]
  - Eye swelling [Recovering/Resolving]
  - Eye inflammation [Recovered/Resolved]
  - Body height increased [Unknown]
  - Mucous stools [Recovered/Resolved]
  - Mobility decreased [Not Recovered/Not Resolved]
  - Gastroenteritis [Not Recovered/Not Resolved]
  - Weight increased [Unknown]
  - Product dose omission issue [Unknown]
  - Product availability issue [Unknown]
  - Treatment noncompliance [Unknown]
  - Product distribution issue [Unknown]
  - Product use issue [Unknown]
  - Infusion related reaction [Unknown]
  - Diarrhoea [Unknown]
  - Vomiting [Recovered/Resolved]

NARRATIVE: CASE EVENT DATE: 20230901
